FAERS Safety Report 16684012 (Version 1)
Quarter: 2019Q3

REPORT INFORMATION
  Report Type: Spontaneous
  Country: FR (occurrence: FR)
  Receive Date: 20190808
  Receipt Date: 20190808
  Transmission Date: 20191004
  Serious: Yes (Death, Hospitalization, Other)
  Sender: FDA-Public Use
  Company Number: FR-009507513-2010SP004758

PATIENT
  Age: 63 Year
  Sex: Male
  Weight: 56 kg

DRUGS (10)
  1. AMIKLIN [Concomitant]
     Active Substance: AMIKACIN SULFATE
     Indication: BRONCHITIS
     Route: 042
     Dates: start: 20090303, end: 20090304
  2. SOLUPRED (PREDNISOLONE SODIUM METAZOATE) [Suspect]
     Active Substance: PREDNISOLONE SODIUM METAZOATE
     Indication: BRAIN OEDEMA
     Dosage: 20 MILLIGRAM, QD
     Route: 048
     Dates: start: 20090122
  3. CEFIXIME. [Suspect]
     Active Substance: CEFIXIME
     Indication: BRONCHITIS
     Dosage: 1 DOSAGE FORM, QD
     Route: 048
     Dates: start: 20090210, end: 20090301
  4. MOPRAL (OMEPRAZOLE) [Concomitant]
     Active Substance: OMEPRAZOLE SODIUM
     Indication: PROPHYLAXIS AGAINST GASTROINTESTINAL ULCER
     Dosage: 20 MG, QD
     Route: 048
     Dates: start: 20090218
  5. PYOSTACINE [Concomitant]
     Active Substance: PRISTINAMYCIN
     Indication: BRONCHITIS
     Route: 048
     Dates: start: 20090301, end: 20090303
  6. VANCOMYCIN [Concomitant]
     Active Substance: VANCOMYCIN
     Indication: BRONCHITIS
     Route: 042
     Dates: start: 20090303, end: 20090304
  7. OROKEN [Suspect]
     Active Substance: CEFIXIME
     Indication: BRONCHITIS
     Dosage: 1 DOSAGE FORM, QD
     Route: 048
     Dates: start: 20090210, end: 20090301
  8. FORTUM [Concomitant]
     Active Substance: CEFTAZIDIME
     Indication: BRONCHITIS
     Route: 042
     Dates: start: 20090304
  9. TEMODAL [Suspect]
     Active Substance: TEMOZOLOMIDE
     Indication: PRODUCT USED FOR UNKNOWN INDICATION
     Dosage: 125 MG, QD
     Route: 048
     Dates: start: 20090122, end: 20090218
  10. CIFLOX (CIPROFLOXACIN HYDROCHLORIDE) [Suspect]
     Active Substance: CIPROFLOXACIN HYDROCHLORIDE
     Indication: BRONCHITIS
     Dosage: 1 DOSAGE FORM, QD
     Route: 048
     Dates: start: 20090210, end: 20090301

REACTIONS (1)
  - Bone marrow failure [Fatal]

NARRATIVE: CASE EVENT DATE: 20090218
